FAERS Safety Report 5375064-1 (Version None)
Quarter: 2007Q2

REPORT INFORMATION
  Report Type: 
  Country: None (occurrence: None)
  Receive Date: 20070629
  Receipt Date: 20070522
  Transmission Date: 20071010
  Serious: No
  Sender: FDA-Public Use
  Company Number: A0652461A

PATIENT
  Sex: Female

DRUGS (1)
  1. AVANDARYL [Suspect]
     Route: 048

REACTIONS (5)
  - ABDOMINAL DISTENSION [None]
  - ANXIETY [None]
  - DIZZINESS [None]
  - FLUID RETENTION [None]
  - SWELLING [None]
